FAERS Safety Report 7295126-1 (Version None)
Quarter: 2011Q1

REPORT INFORMATION
  Report Type: 
  Country: None (occurrence: None)
  Receive Date: 20110216
  Receipt Date: 20101110
  Transmission Date: 20110831
  Serious: Yes (Hospitalization, Other)
  Sender: FDA-Public Use
  Company Number: US-NOVOPROD-302983

PATIENT
  Sex: Female
  Weight: 76.6 kg

DRUGS (11)
  1. NOVORAPID FLEXPEN [Suspect]
     Indication: TYPE 1 DIABETES MELLITUS
     Dosage: 17 IU, QD
     Route: 058
     Dates: start: 20091007, end: 20100303
  2. HYDROCHLOROTHIAZIDE [Concomitant]
     Dosage: 12.5 MG, QD
     Route: 048
  3. SYNTHROID [Concomitant]
     Dosage: 75 UG, QD
  4. ZOCOR [Concomitant]
     Dosage: 40 MG, QD
     Route: 048
  5. EFFEXOR [Concomitant]
     Dosage: 112.5 MG, QD (37.5+75 MG)
     Route: 048
  6. TOPAMAX [Concomitant]
     Dosage: 50 MG, BID
     Route: 048
  7. HUMALOG [Concomitant]
     Dosage: 5-10 IU
     Route: 058
  8. LEVOTHYROXINE SODIUM [Concomitant]
     Dosage: 75 UG, QD
  9. NOVORAPID FLEXPEN [Suspect]
     Dosage: 32 IU, QD
     Route: 058
     Dates: start: 20091214, end: 20091214
  10. LANTUS [Suspect]
     Indication: TYPE 1 DIABETES MELLITUS
     Dosage: 24 IU, QD
     Route: 058
     Dates: start: 20091007, end: 20100303
  11. PANTOPRAZOLE [Concomitant]
     Dosage: 40 MG, BID
     Route: 048

REACTIONS (1)
  - THYROID CANCER [None]
